FAERS Safety Report 6910458-1 (Version None)
Quarter: 2010Q3

REPORT INFORMATION
  Report Type: 
  Country: None (occurrence: None)
  Receive Date: 20100806
  Receipt Date: 20100728
  Transmission Date: 20110219
  Serious: Yes (Hospitalization, Other)
  Sender: FDA-Public Use
  Company Number: FR-BRISTOL-MYERS SQUIBB COMPANY-15217912

PATIENT
  Age: 72 Year
  Sex: Male

DRUGS (5)
  1. AMIKLIN INJ [Suspect]
     Indication: LUNG DISORDER
     Route: 042
     Dates: start: 20100406
  2. AZACITIDINE [Suspect]
     Indication: ACUTE MYELOID LEUKAEMIA
     Dates: start: 20100322, end: 20100330
  3. ROCEPHIN [Suspect]
     Indication: LUNG DISORDER
     Dates: start: 20100403, end: 20100405
  4. CIFLOX [Suspect]
     Indication: LUNG DISORDER
     Dates: start: 20100403, end: 20100405
  5. IMIPENEM AND CILASTATIN [Suspect]
     Indication: LUNG DISORDER
     Route: 042
     Dates: start: 20100406

REACTIONS (2)
  - CHOLESTASIS [None]
  - PANCREATITIS ACUTE [None]
